FAERS Safety Report 19612208 (Version 1)
Quarter: 2021Q3

REPORT INFORMATION
  Report Type: Spontaneous
  Country: FR (occurrence: FR)
  Receive Date: 20210727
  Receipt Date: 20210727
  Transmission Date: 20211014
  Serious: Yes (Hospitalization)
  Sender: FDA-Public Use
  Company Number: FR-AUROBINDO-AUR-APL-2021-031705

PATIENT
  Age: 56 Year
  Sex: Male

DRUGS (1)
  1. VALPROIC ACID. [Suspect]
     Active Substance: VALPROIC ACID
     Indication: EPILEPSY
     Dosage: 2 GRAM, ONCE A DAY
     Route: 048
     Dates: start: 20210316, end: 20210503

REACTIONS (1)
  - Resting tremor [Recovering/Resolving]

NARRATIVE: CASE EVENT DATE: 20210323
